FAERS Safety Report 6254654-8 (Version None)
Quarter: 2009Q3

REPORT INFORMATION
  Report Type: 
  Country: None (occurrence: None)
  Receive Date: 20090702
  Receipt Date: 20090624
  Transmission Date: 20100115
  Serious: Yes (Congenital Anomaly, Other)
  Sender: FDA-Public Use
  Company Number: B0580344B

PATIENT
  Sex: Male

DRUGS (4)
  1. ALBUTEROL [Suspect]
     Indication: THREATENED LABOUR
     Dates: start: 20090302, end: 20090413
  2. ATOSIBAN [Suspect]
     Indication: THREATENED LABOUR
     Dates: start: 20090302, end: 20090413
  3. ADALAT [Suspect]
     Indication: THREATENED LABOUR
  4. CELESTENE [Suspect]
     Dates: start: 20090403, end: 20090404

REACTIONS (4)
  - BRADYCARDIA FOETAL [None]
  - CAESAREAN SECTION [None]
  - DRUG EXPOSURE DURING PREGNANCY [None]
  - HYPOSPADIAS [None]
